FAERS Safety Report 6330330-8 (Version None)
Quarter: 2009Q3

REPORT INFORMATION
  Report Type: 
  Country: None (occurrence: None)
  Receive Date: 20090827
  Receipt Date: 20070912
  Transmission Date: 20100115
  Serious: Yes (Other)
  Sender: FDA-Public Use
  Company Number: US-ASTRAZENECA-2006UW11458

PATIENT
  Age: 14021 Day
  Sex: Male
  Weight: 128.8 kg

DRUGS (21)
  1. SEROQUEL [Suspect]
     Indication: ANXIETY
     Route: 048
     Dates: start: 19980101
  2. SEROQUEL [Suspect]
     Indication: DEPRESSION
     Route: 048
     Dates: start: 19980101
  3. SEROQUEL [Suspect]
     Indication: BIPOLAR DISORDER
     Route: 048
     Dates: start: 19980101
  4. SEROQUEL [Suspect]
     Indication: PARANOIA
     Route: 048
     Dates: start: 19980101
  5. SEROQUEL [Suspect]
     Route: 048
     Dates: start: 20000101, end: 20060101
  6. SEROQUEL [Suspect]
     Route: 048
     Dates: start: 20000101, end: 20060101
  7. SEROQUEL [Suspect]
     Route: 048
     Dates: start: 20000101, end: 20060101
  8. SEROQUEL [Suspect]
     Route: 048
     Dates: start: 20000101, end: 20060101
  9. SEROQUEL [Suspect]
     Dosage: 25-125 MG
     Route: 048
     Dates: start: 20000801
  10. SEROQUEL [Suspect]
     Dosage: 25-125 MG
     Route: 048
     Dates: start: 20000801
  11. SEROQUEL [Suspect]
     Dosage: 25-125 MG
     Route: 048
     Dates: start: 20000801
  12. SEROQUEL [Suspect]
     Dosage: 25-125 MG
     Route: 048
     Dates: start: 20000801
  13. ABILIFY [Concomitant]
     Dates: start: 20060831
  14. TRAZODONE HCL [Concomitant]
     Dates: start: 20070104
  15. SARAFEM [Concomitant]
  16. PROZAC [Concomitant]
     Dosage: 20-80 MG
     Route: 048
     Dates: start: 20000801
  17. WELLBUTRIN [Concomitant]
     Dates: start: 20000801
  18. CELEBREX [Concomitant]
     Dosage: 40-200 MG
     Route: 048
     Dates: start: 20000801
  19. GLYBURIDE [Concomitant]
     Dosage: 5-10 MG
     Dates: start: 20020823
  20. HYDROCHLOROTHIAZIDE [Concomitant]
     Dates: start: 20020823
  21. EFFEXOR [Concomitant]
     Dosage: 75-300 MG
     Dates: start: 20020823

REACTIONS (6)
  - CIRCUMCISION [None]
  - CYST [None]
  - DERMAL CYST [None]
  - DIABETES MELLITUS [None]
  - NEOPLASM MALIGNANT [None]
  - SHOULDER OPERATION [None]
